FAERS Safety Report 7549133-1 (Version None)
Quarter: 2011Q2

REPORT INFORMATION
  Report Type: 
  Country: None (occurrence: None)
  Receive Date: 20110615
  Receipt Date: 20110601
  Transmission Date: 20111010
  Serious: Yes (Hospitalization, Other)
  Sender: FDA-Public Use
  Company Number: PHHY2011SE51670

PATIENT
  Sex: Female

DRUGS (3)
  1. BROMOCRIPTINE MESYLATE [Suspect]
     Indication: PARKINSONISM
     Dosage: UNK
     Route: 048
     Dates: end: 20110101
  2. MADOPARK [Concomitant]
  3. PRAMIPEXOLE DIHYCHLLORIDE [Suspect]
     Indication: PARKINSONISM
     Dosage: UNK
     Route: 048
     Dates: end: 20110101

REACTIONS (6)
  - CONFUSIONAL STATE [None]
  - PERICARDIAL EFFUSION [None]
  - HYPERMOBILITY SYNDROME [None]
  - DYSPNOEA [None]
  - DYSKINESIA [None]
  - HALLUCINATION, VISUAL [None]
